FAERS Safety Report 25523132 (Version 2)
Quarter: 2025Q4

REPORT INFORMATION
  Report Type: Spontaneous
  Country: GB (occurrence: GB)
  Receive Date: 20250707
  Receipt Date: 20251221
  Transmission Date: 20260117
  Serious: Yes (Congenital Anomaly, Other)
  Sender: AUROBINDO
  Company Number: GB-MHRA-MED-202506231504471410-DFWHB

PATIENT
  Age: 0 Day
  Sex: Female

DRUGS (1)
  1. TRAMADOL [Suspect]
     Active Substance: TRAMADOL
     Indication: Back pain
     Dosage: UNK
     Route: 065

REACTIONS (5)
  - Autism spectrum disorder [Not Recovered/Not Resolved]
  - Optic nerve hypoplasia [Not Recovered/Not Resolved]
  - Strabismus [Not Recovered/Not Resolved]
  - Nystagmus [Recovered/Resolved]
  - Foetal exposure during pregnancy [Unknown]

NARRATIVE: CASE EVENT DATE: 20190812
